FAERS Safety Report 7494249-1 (Version None)
Quarter: 2011Q2

REPORT INFORMATION
  Report Type: 
  Country: None (occurrence: None)
  Receive Date: 20110520
  Receipt Date: 20110517
  Transmission Date: 20111010
  Serious: Yes (Other)
  Sender: FDA-Public Use
  Company Number: ES-BRISTOL-MYERS SQUIBB COMPANY-15749401

PATIENT
  Age: 45 Year
  Sex: Male

DRUGS (4)
  1. REYATAZ [Suspect]
     Route: 048
     Dates: start: 20100930
  2. NORVIR [Suspect]
     Dosage: NORVIR 10 MG 84 CAPSULES
     Route: 048
     Dates: start: 20100930
  3. INTELENCE [Suspect]
     Dosage: INTELENCE 100MG
     Route: 048
     Dates: start: 20100930
  4. VIREAD [Suspect]
     Dosage: VIREAD 245MG
     Route: 048
     Dates: start: 20100930

REACTIONS (2)
  - ANOSMIA [None]
  - AGEUSIA [None]
